FAERS Safety Report 21790116 (Version 14)
Quarter: 2025Q3

REPORT INFORMATION
  Report Type: Spontaneous
  Country: BR (occurrence: BR)
  Receive Date: 20221228
  Receipt Date: 20250815
  Transmission Date: 20251021
  Serious: Yes (Other)
  Sender: MYLAN
  Company Number: BR-MYLANLABS-2022M1146388

PATIENT
  Sex: Female
  Weight: 65 kg

DRUGS (10)
  1. ALPRAZOLAM [Suspect]
     Active Substance: ALPRAZOLAM
     Indication: Insomnia
     Dosage: 1 MILLIGRAM, QD
     Dates: start: 2004
  2. ALPRAZOLAM [Suspect]
     Active Substance: ALPRAZOLAM
     Indication: Facial pain
     Dosage: 2 MILLIGRAM, QD
     Dates: start: 2012
  3. ALPRAZOLAM [Suspect]
     Active Substance: ALPRAZOLAM
     Dosage: 2.25 MILLIGRAM, QD (2 TABLETS OF 1 MG AND 1 TABLET OF 0.25MG )
  4. ALPRAZOLAM [Suspect]
     Active Substance: ALPRAZOLAM
     Dosage: 2.5 MILLIGRAM, QD (TWO TABLETS OF 1.0MG AND 1 TABLET OF FRONTAL 0.5 MG)
  5. ALPRAZOLAM [Suspect]
     Active Substance: ALPRAZOLAM
     Dosage: 2.5 MILLIGRAM, QD (PM)
  6. ALPRAZOLAM [Suspect]
     Active Substance: ALPRAZOLAM
     Indication: Insomnia
     Dosage: 2.5 MILLIGRAM, QD (PM)
  7. ALPRAZOLAM [Suspect]
     Active Substance: ALPRAZOLAM
     Indication: Facial pain
  8. PAMELOR [Concomitant]
     Active Substance: NORTRIPTYLINE HYDROCHLORIDE
     Indication: Pain
     Dosage: 20 MILLIGRAM, QD
     Dates: start: 2004
  9. CODEINE [Concomitant]
     Active Substance: CODEINE
     Indication: Pain
  10. PAMELOR [Concomitant]
     Active Substance: NORTRIPTYLINE HYDROCHLORIDE
     Indication: Pain

REACTIONS (24)
  - Mental disorder [Recovering/Resolving]
  - Spinal disorder [Recovering/Resolving]
  - Depression [Recovered/Resolved]
  - Drug dependence [Not Recovered/Not Resolved]
  - General physical health deterioration [Recovering/Resolving]
  - Stress [Not Recovered/Not Resolved]
  - Pain [Recovered/Resolved]
  - Migraine [Not Recovered/Not Resolved]
  - Condition aggravated [Not Recovered/Not Resolved]
  - Feeling of despair [Recovered/Resolved]
  - Pain in jaw [Recovered/Resolved]
  - Somatic symptom disorder [Recovering/Resolving]
  - Eating disorder [Recovered/Resolved]
  - Hypotension [Not Recovered/Not Resolved]
  - Malaise [Recovered/Resolved]
  - Anxiety [Not Recovered/Not Resolved]
  - Headache [Unknown]
  - Weight decreased [Recovered/Resolved]
  - Insomnia [Unknown]
  - Fatigue [Not Recovered/Not Resolved]
  - Drug ineffective [Recovered/Resolved]
  - Product use issue [Not Recovered/Not Resolved]
  - Product availability issue [Not Recovered/Not Resolved]
  - Off label use [Not Recovered/Not Resolved]

NARRATIVE: CASE EVENT DATE: 20040101
